FAERS Safety Report 23723429 (Version 2)
Quarter: 2024Q2

REPORT INFORMATION
  Report Type: Spontaneous
  Country: FR (occurrence: FR)
  Receive Date: 20240409
  Receipt Date: 20240419
  Transmission Date: 20240716
  Serious: Yes (Other)
  Sender: FDA-Public Use
  Company Number: FR-EMA-DD-20240401-7482705-121758

PATIENT
  Age: 56 Year
  Sex: Female

DRUGS (1)
  1. DOCETAXEL [Suspect]
     Active Substance: DOCETAXEL\DOCETAXEL ANHYDROUS
     Indication: Invasive lobular breast carcinoma
     Dosage: UNK

REACTIONS (5)
  - Skin necrosis [Unknown]
  - Morphoea [Unknown]
  - Toxicity to various agents [Unknown]
  - Injection site extravasation [Unknown]
  - Skin discolouration [Unknown]
